FAERS Safety Report 22003012 (Version 1)
Quarter: 2023Q1

REPORT INFORMATION
  Report Type: Report from Study
  Country: JP (occurrence: JP)
  Receive Date: 20230217
  Receipt Date: 20230217
  Transmission Date: 20230417
  Serious: Yes (Death, Other)
  Sender: FDA-Public Use
  Company Number: JP-TAKEDA-2023TJP002189

PATIENT
  Age: 19 Year
  Sex: Male

DRUGS (13)
  1. VELAGLUCERASE ALFA [Suspect]
     Active Substance: VELAGLUCERASE ALFA
     Indication: Gaucher^s disease
     Dosage: UNK
     Route: 065
     Dates: start: 20180724
  2. ZONISAMIDE [Concomitant]
     Active Substance: ZONISAMIDE
     Indication: Gaucher^s disease
     Dosage: 200 MILLIGRAM
     Route: 048
     Dates: end: 20200212
  3. RIVOTRIL [Concomitant]
     Active Substance: CLONAZEPAM
     Indication: Gaucher^s disease
     Dosage: 0.75 MILLIGRAM
     Route: 048
     Dates: end: 20200212
  4. DIAZEPAM [Concomitant]
     Active Substance: DIAZEPAM
     Indication: Gaucher^s disease
     Dosage: 8 MILLIGRAM
     Route: 048
     Dates: end: 20200212
  5. VALPROATE SODIUM [Concomitant]
     Active Substance: VALPROATE SODIUM
     Indication: Gaucher^s disease
     Dosage: 800 MILLIGRAM
     Route: 048
     Dates: end: 20200212
  6. AMBROXOL HYDROCHLORIDE [Concomitant]
     Active Substance: AMBROXOL HYDROCHLORIDE
     Dosage: 15 MILLIGRAM
     Route: 048
     Dates: end: 20200212
  7. CARBOCYSTEINE [Concomitant]
     Active Substance: CARBOCYSTEINE
     Dosage: 500 MILLIGRAM
     Route: 048
     Dates: end: 20200212
  8. TRICLOFOS SODIUM [Concomitant]
     Active Substance: TRICLOFOS SODIUM
     Dosage: 30 MILLILITER
     Route: 048
     Dates: end: 20200212
  9. MAGNESIUM OXIDE [Concomitant]
     Active Substance: MAGNESIUM OXIDE
     Dosage: 1 GRAM
     Route: 048
     Dates: end: 20200212
  10. FYCOMPA [Concomitant]
     Active Substance: PERAMPANEL
     Indication: Gaucher^s disease
     Dosage: 2 MILLIGRAM
     Route: 048
     Dates: end: 20200212
  11. BISACODYL [Concomitant]
     Active Substance: BISACODYL
     Dosage: 10 MILLIGRAM
     Route: 054
     Dates: end: 20200212
  12. GLYCOSAMINOGLYCANS [Concomitant]
     Active Substance: GLYCOSAMINOGLYCANS
     Dosage: 25 GRAM
     Route: 003
     Dates: end: 20200212
  13. SOLITA T GRANULES NO.3 [Concomitant]
     Dosage: 4 GRAM
     Route: 048
     Dates: end: 20200212

REACTIONS (1)
  - Death [Fatal]

NARRATIVE: CASE EVENT DATE: 20200212
